FAERS Safety Report 5392216-5 (Version None)
Quarter: 2007Q3

REPORT INFORMATION
  Report Type: 
  Country: None (occurrence: None)
  Receive Date: 20070720
  Receipt Date: 20070706
  Transmission Date: 20080115
  Serious: Yes (Other)
  Sender: FDA-Public Use
  Company Number: US-AVENTIS-200714580US

PATIENT
  Age: 70 Year
  Sex: Female

DRUGS (21)
  1. LANTUS [Suspect]
     Route: 051
  2. OPTICLIK (INSULIN INJECTION PEN) [Suspect]
     Dates: start: 20061101
  3. RENAGEL                            /01459902/ [Concomitant]
     Dosage: DOSE: UNK
  4. PREVACID [Concomitant]
     Dosage: DOSE: UNK
  5. SENSIPAR [Concomitant]
     Dosage: DOSE: UNK
  6. CALCITRIOL [Concomitant]
     Dosage: DOSE: UNK
  7. AMITRIPTYLINE HCL [Concomitant]
     Dosage: DOSE: UNK
  8. PRANDIN                            /01393601/ [Concomitant]
     Dosage: DOSE: UNK
  9. LASIX [Concomitant]
     Dosage: DOSE: UNK
  10. DETROL LA [Concomitant]
     Dosage: DOSE: UNK
  11. AMLODIPINE-BENAZEPRIL [Concomitant]
     Dosage: DOSE: UNK
  12. LEVOXYL [Concomitant]
     Dosage: DOSE: UNK
  13. SIMVASTATIN [Concomitant]
     Dosage: DOSE: UNK
  14. CLONIDINE [Concomitant]
     Dosage: DOSE: UNK
  15. ATENOLOL [Concomitant]
     Dosage: DOSE: UNK
  16. ASPIRIN [Concomitant]
     Dosage: DOSE: UNK
  17. GLUCOSAMINE [Concomitant]
     Dosage: DOSE: UNK
  18. NEPHROCAPS                         /01041101/ [Concomitant]
     Dosage: DOSE: UNK
  19. SENOKOT                            /00142201/ [Concomitant]
     Dosage: DOSE: UNK
  20. POLYETHYLENE GLYCOL [Concomitant]
     Dosage: DOSE: UNK
  21. STOOL SOFTENER [Concomitant]
     Dosage: DOSE: UNK

REACTIONS (2)
  - BLOOD GLUCOSE INCREASED [None]
  - PERITONEAL DIALYSIS [None]
